FAERS Safety Report 4553152-7 (Version None)
Quarter: 2005Q1

REPORT INFORMATION
  Report Type: 
  Country: None (occurrence: None)
  Receive Date: 20050114
  Receipt Date: 20041213
  Transmission Date: 20050727
  Serious: Yes (Hospitalization)
  Sender: FDA-Public Use
  Company Number: IE-GLAXOSMITHKLINE-B0362525A

PATIENT
  Age: 43 Year
  Sex: Male
  Weight: 74.8 kg

DRUGS (2)
  1. LAMICTAL [Suspect]
     Indication: FUNGAL INFECTION
     Route: 065
     Dates: start: 20040901, end: 20041119
  2. LITHIUM [Concomitant]
     Indication: BIPOLAR DISORDER
     Dosage: 1000MG PER DAY
     Route: 048

REACTIONS (3)
  - ELEVATED MOOD [None]
  - MANIA [None]
  - MEDICATION ERROR [None]
